FAERS Safety Report 14137462 (Version 4)
Quarter: 2018Q1

REPORT INFORMATION
  Report Type: Report from Study
  Country: US (occurrence: US)
  Receive Date: 20171027
  Receipt Date: 20180214
  Transmission Date: 20180508
  Serious: Yes (Other)
  Sender: FDA-Public Use
  Company Number: PHEH2017US034580

PATIENT
  Sex: Female

DRUGS (1)
  1. COSENTYX [Suspect]
     Active Substance: SECUKINUMAB
     Indication: PSORIASIS
     Dosage: 300 MG, QMO
     Route: 058

REACTIONS (16)
  - Oral disorder [Unknown]
  - Drug hypersensitivity [Unknown]
  - Ill-defined disorder [Unknown]
  - Inappropriate schedule of drug administration [Unknown]
  - Oral fungal infection [Unknown]
  - Dysphagia [Unknown]
  - Weight decreased [Unknown]
  - Wrong technique in product usage process [Unknown]
  - Incorrect dose administered [Unknown]
  - Pyrexia [Unknown]
  - Malaise [Unknown]
  - Oropharyngeal pain [Unknown]
  - Injection site pain [Unknown]
  - Hyperhidrosis [Unknown]
  - Chills [Unknown]
  - Diarrhoea [Unknown]
